FAERS Safety Report 5024737-9 (Version None)
Quarter: 2006Q2

REPORT INFORMATION
  Report Type: 
  Country: None (occurrence: None)
  Receive Date: 20060426
  Receipt Date: 20060213
  Transmission Date: 20061013
  Serious: Yes (Other)
  Sender: FDA-Public Use
  Company Number: 2006021827

PATIENT
  Age: 80 Year
  Sex: Female
  Weight: 47.6277 kg

DRUGS (9)
  1. LYRICA [Suspect]
     Indication: NEUROPATHY
     Dosage: 50 MG (50 MG, 1 IN 1 D)
     Dates: start: 20051101
  2. MACROBID [Suspect]
     Indication: CYSTITIS
     Dosage: 100 MG (100 MG, 1 IN 1 D)
     Dates: start: 20060209
  3. LIPITOR [Concomitant]
  4. DIOVAN [Concomitant]
  5. DYAZIDE [Concomitant]
  6. LEVOTHROID [Concomitant]
  7. BAYER CHILDREN'S ASPIRIN (ACETLYSALICYLIC ACID) [Concomitant]
  8. ESTRATEST [Concomitant]
  9. PREMARIN [Concomitant]

REACTIONS (5)
  - CYSTITIS [None]
  - DISCOMFORT [None]
  - DRUG INEFFECTIVE [None]
  - DRUG INTERACTION [None]
  - INSOMNIA [None]
